FAERS Safety Report 4589568-2 (Version None)
Quarter: 2005Q1

REPORT INFORMATION
  Report Type: 
  Country: None (occurrence: None)
  Receive Date: 20050217
  Receipt Date: 20050210
  Transmission Date: 20050727
  Serious: Yes (Hospitalization)
  Sender: FDA-Public Use
  Company Number: THQ2005A00188

PATIENT
  Sex: Male

DRUGS (3)
  1. ACTOS [Suspect]
     Indication: HYPERGLYCAEMIA
     Dosage: 30 MG (1 D)
     Dates: start: 20041201
  2. METFORMIN [Concomitant]
  3. GLUCONORM (GLIBENCLAMIDE) [Concomitant]

REACTIONS (2)
  - JAUNDICE [None]
  - PANCREATIC NEOPLASM [None]
